FAERS Safety Report 13969570 (Version 3)
Quarter: 2018Q1

REPORT INFORMATION
  Report Type: Spontaneous
  Country: US (occurrence: US)
  Receive Date: 20170914
  Receipt Date: 20180301
  Transmission Date: 20180508
  Serious: No
  Sender: FDA-Public Use
  Company Number: US-PFIZER INC-2017398554

PATIENT
  Age: 34 Year
  Sex: Female
  Weight: 54.43 kg

DRUGS (11)
  1. BACLOFEN. [Concomitant]
     Active Substance: BACLOFEN
     Indication: MIGRAINE
     Dosage: 10 MG, 8 TIMES A DAY
  2. PRAZOSIN. [Concomitant]
     Active Substance: PRAZOSIN
     Indication: POST-TRAUMATIC STRESS DISORDER
     Dosage: 5 MG, 1X/DAY
  3. LYRICA [Suspect]
     Active Substance: PREGABALIN
     Dosage: UNK, 2X/DAY
  4. BACLOFEN. [Concomitant]
     Active Substance: BACLOFEN
     Indication: FIBROMYALGIA
  5. TRAMADOL. [Concomitant]
     Active Substance: TRAMADOL
     Indication: PAIN
     Dosage: 100 MG, 3X/DAY
  6. PRAZOSIN. [Concomitant]
     Active Substance: PRAZOSIN
     Indication: NIGHTMARE
  7. LYRICA [Suspect]
     Active Substance: PREGABALIN
     Dosage: UNK, UP TO 4 A DAY
  8. LYRICA [Suspect]
     Active Substance: PREGABALIN
     Indication: FIBROMYALGIA
     Dosage: 150 MG, 3X/DAY
     Route: 048
     Dates: start: 2014
  9. CLONAZEPAM. [Concomitant]
     Active Substance: CLONAZEPAM
     Indication: ANXIETY
     Dosage: 2.5 MG, 1X/DAY
  10. NITROFURANTOIN. [Concomitant]
     Active Substance: NITROFURANTOIN
     Indication: URINARY TRACT INFECTION
     Dosage: 50 MG, 1X/DAY
  11. VENTOLIN [Concomitant]
     Active Substance: ALBUTEROL SULFATE
     Indication: WHEEZING
     Dosage: 2 DF, INHALER COUPLE TIMES A DAY

REACTIONS (22)
  - Nausea [Recovered/Resolved]
  - Nervousness [Recovered/Resolved]
  - Pain [Not Recovered/Not Resolved]
  - Retching [Unknown]
  - Impaired work ability [Unknown]
  - Decreased appetite [Recovered/Resolved]
  - Headache [Recovered/Resolved]
  - Dehydration [Not Recovered/Not Resolved]
  - Withdrawal syndrome [Recovered/Resolved]
  - Dizziness [Recovered/Resolved]
  - Cognitive disorder [Unknown]
  - Abdominal pain upper [Unknown]
  - Product use issue [Unknown]
  - Feeling of body temperature change [Recovered/Resolved]
  - Emotional disorder [Not Recovered/Not Resolved]
  - Impaired driving ability [Unknown]
  - Intentional product use issue [Recovered/Resolved]
  - Hyperhidrosis [Not Recovered/Not Resolved]
  - Insomnia [Recovered/Resolved]
  - Dyspepsia [Unknown]
  - Malaise [Unknown]
  - Influenza [Unknown]

NARRATIVE: CASE EVENT DATE: 2014
